FAERS Safety Report 18031135 (Version 3)
Quarter: 2020Q3

REPORT INFORMATION
  Report Type: Spontaneous
  Country: PL (occurrence: PL)
  Receive Date: 20200715
  Receipt Date: 20200723
  Transmission Date: 20201103
  Serious: Yes (Death, Other)
  Sender: FDA-Public Use
  Company Number: PL-AUROBINDO-AUR-APL-2020-034308

PATIENT
  Age: 68 Year
  Sex: Female

DRUGS (7)
  1. LEVOTHYROXINE. [Suspect]
     Active Substance: LEVOTHYROXINE
     Indication: HYPOTHYROIDISM
     Dosage: UNK
     Route: 065
  2. METFORMIN [Suspect]
     Active Substance: METFORMIN HYDROCHLORIDE
     Indication: TYPE 2 DIABETES MELLITUS
     Dosage: UNK
     Route: 065
     Dates: start: 2015
  3. CARBOPLATIN. [Suspect]
     Active Substance: CARBOPLATIN
     Indication: SMALL CELL LUNG CANCER
     Dosage: UNK,4 UNK, CYCLIC,AUC 5, CYCLIC (ON DAY 1, EVERY THREE WEEKS)
     Route: 065
  4. OMEPRAZOLE. [Suspect]
     Active Substance: OMEPRAZOLE
     Indication: ABDOMINAL PAIN UPPER
     Dosage: UNK
     Route: 065
  5. ATEZOLIZUMAB. [Suspect]
     Active Substance: ATEZOLIZUMAB
     Indication: SMALL CELL LUNG CANCER
     Dosage: 120 MILLIGRAM EVERY 3 WEEKS
     Route: 042
  6. PARACETAMOL;TRAMADOL [Suspect]
     Active Substance: ACETAMINOPHEN\TRAMADOL
     Indication: CHEST PAIN
     Dosage: UNK
     Route: 065
     Dates: end: 201705
  7. ETOPOSIDE. [Suspect]
     Active Substance: ETOPOSIDE
     Indication: SMALL CELL LUNG CANCER
     Dosage: 120 MILLIGRAM/SQ. METER, 1 CYCLE
     Route: 065

REACTIONS (11)
  - Lung neoplasm malignant [Fatal]
  - Hypothyroidism [Fatal]
  - Vomiting [Unknown]
  - Anxiety [Fatal]
  - Blood alkaline phosphatase increased [Fatal]
  - Oedema peripheral [Fatal]
  - Hypokalaemia [Fatal]
  - Anaemia [Fatal]
  - Arthralgia [Fatal]
  - Condition aggravated [Fatal]
  - Neutropenia [Fatal]
